FAERS Safety Report 25932507 (Version 1)
Quarter: 2025Q4

REPORT INFORMATION
  Report Type: Report from Study
  Country: EU (occurrence: EU)
  Receive Date: 20251017
  Receipt Date: 20251017
  Transmission Date: 20260118
  Serious: Yes (Hospitalization)
  Sender: ABBVIE
  Company Number: EU-ABBVIE-6484027

PATIENT
  Age: 59 Year
  Sex: Male

DRUGS (2)
  1. CARBIDOPA [Suspect]
     Active Substance: CARBIDOPA
     Indication: Product used for unknown indication
     Route: 050
     Dates: start: 20201223
  2. CARBIDOPA [Suspect]
     Active Substance: CARBIDOPA

REACTIONS (3)
  - Cognitive disorder [Not Recovered/Not Resolved]
  - Device issue [Unknown]
  - Hallucination [Not Recovered/Not Resolved]

NARRATIVE: CASE EVENT DATE: 20250926
